APPROVED DRUG PRODUCT: DONEPEZIL HYDROCHLORIDE
Active Ingredient: DONEPEZIL HYDROCHLORIDE
Strength: 10MG
Dosage Form/Route: TABLET, ORALLY DISINTEGRATING;ORAL
Application: A204831 | Product #002
Applicant: UNICHEM LABORATORIES LTD
Approved: Nov 10, 2016 | RLD: No | RS: No | Type: DISCN